FAERS Safety Report 24609718 (Version 5)
Quarter: 2024Q4

REPORT INFORMATION
  Report Type: Report from Study
  Country: ES (occurrence: ES)
  Receive Date: 20241112
  Receipt Date: 20241202
  Transmission Date: 20250115
  Serious: Yes (Death, Hospitalization)
  Sender: ABBVIE
  Company Number: ES-ABBVIE-5962221

PATIENT
  Age: 53 Year
  Sex: Male

DRUGS (4)
  1. CARBIDOPA\LEVODOPA [Suspect]
     Active Substance: CARBIDOPA\LEVODOPA
     Indication: Parkinson^s disease
     Dosage: LAST ADMIN DATE: OCT 2024, ?240 MG/ML + 12 MG/ML SOLUCION PARA PERFUSION
     Route: 058
     Dates: start: 20241007
  2. CARBIDOPA\LEVODOPA [Suspect]
     Active Substance: CARBIDOPA\LEVODOPA
     Dosage: USE DOSES OF 0.18 ML/H PER DAY AND 0.17 ML/H AT NIGHT, ?START DATE 2024?240 MG/ML + 12 MG/ML SOLU...
     Route: 058
     Dates: end: 202411
  3. CARBIDOPA\LEVODOPA [Suspect]
     Active Substance: CARBIDOPA\LEVODOPA
     Dosage: LOW SPEED OF 0.15ML/H, ?START DATE OCT 2024?LAST ADMIN DATE: 2024, ?240 MG/ML + 12 MG/ML SOLUCION...
     Route: 058
  4. GABAPENTIN [Concomitant]
     Active Substance: GABAPENTIN
     Indication: Product used for unknown indication
     Dosage: INCREASE TO 200 MG

REACTIONS (13)
  - Cardio-respiratory arrest [Fatal]
  - Therapeutic product effect incomplete [Unknown]
  - Suicide attempt [Recovering/Resolving]
  - Pain [Recovered/Resolved]
  - Pain [Recovering/Resolving]
  - Balance disorder [Not Recovered/Not Resolved]
  - Reduced facial expression [Recovered/Resolved]
  - Dyskinesia [Unknown]
  - Negative thoughts [Unknown]
  - Dizziness [Not Recovered/Not Resolved]
  - On and off phenomenon [Unknown]
  - Musculoskeletal stiffness [Recovered/Resolved]
  - Bradykinesia [Recovered/Resolved]

NARRATIVE: CASE EVENT DATE: 20240101
